FAERS Safety Report 9252517 (Version 2)
Quarter: 2014Q1

REPORT INFORMATION
  Report Type: Spontaneous
  Country: US (occurrence: None)
  Receive Date: 20130305
  Receipt Date: 20140306
  Transmission Date: 20141002
  Serious: Yes (Other)
  Sender: FDA-Public Use
  Company Number: 163-21880-12052411

PATIENT
  Age: 59 Year
  Sex: Female
  Weight: 47.6 kg

DRUGS (12)
  1. REVLIMID (LENALIDOMIDE) (25 MILLIGRAM, CAPSULES) [Suspect]
     Indication: PLASMA CELL MYELOMA
     Dosage: 25MG, FOR 21 DAYS, PO
     Route: 048
     Dates: start: 20111212
  2. CALTRATE CALCIUM (CALCIUM CARBONATE) [Concomitant]
  3. DEXAMETHASONE (DEXAMETHASONE) [Concomitant]
  4. MEGACE (MEGESTROL ACETATE) [Concomitant]
  5. OXYCONTIN (OXYCODONE HYDROCHLORIDE) [Concomitant]
  6. PERCOCET (OXYOCET) [Concomitant]
  7. TIZANIDINE (TIZANIDINE) [Concomitant]
  8. XANAX (ALPRAZOLAM) [Concomitant]
  9. ZOLOFT (SERTRALINE HYDROCHLORIDE) [Concomitant]
  10. ZOMETA (ZOLEDRONIC ACID) [Concomitant]
  11. VALACYCLOVIR HCL (VALACICLOVIR HYDROCHLORIDE) [Concomitant]
  12. ASPIRIN (ACETYLSALICYLIC ACID) [Concomitant]

REACTIONS (3)
  - Thrombosis [None]
  - Night sweats [None]
  - Alopecia [None]
